FAERS Safety Report 5612468-3 (Version None)
Quarter: 2008Q1

REPORT INFORMATION
  Report Type: 
  Country: None (occurrence: None)
  Receive Date: 20080204
  Receipt Date: 20080122
  Transmission Date: 20080703
  Serious: Yes (Other)
  Sender: FDA-Public Use
  Company Number: BR-ROCHE-538232

PATIENT
  Age: 15 Year
  Sex: Male
  Weight: 78 kg

DRUGS (5)
  1. ROACUTAN [Suspect]
     Dosage: STRENGTH 20+10 MG
     Route: 048
     Dates: start: 20070226, end: 20070301
  2. ROACUTAN [Suspect]
     Dosage: STRENGTH 20 MG
     Route: 048
     Dates: start: 20070301, end: 20070901
  3. ROACUTAN [Suspect]
     Dosage: STRENGTH 20 MG
     Route: 048
     Dates: start: 20070901, end: 20071010
  4. ROACUTAN [Suspect]
     Dosage: STRENGTH: 20 MG
     Route: 048
     Dates: start: 20071010, end: 20071217
  5. AZITHROMYCIN [Concomitant]
     Indication: ACNE
     Dates: start: 20071101

REACTIONS (3)
  - BLOOD ALKALINE PHOSPHATASE INCREASED [None]
  - HERNIA [None]
  - THERAPEUTIC RESPONSE DECREASED [None]
